FAERS Safety Report 7920739-0 (Version None)
Quarter: 2011Q4

REPORT INFORMATION
  Report Type: 
  Country: None (occurrence: None)
  Receive Date: 20111117
  Receipt Date: 20111107
  Transmission Date: 20120403
  Serious: Yes (Hospitalization)
  Sender: FDA-Public Use
  Company Number: SE-ABBOTT-11P-150-0722656-01

PATIENT
  Sex: Female
  Weight: 50 kg

DRUGS (9)
  1. HUMIRA [Suspect]
     Route: 058
     Dates: end: 20090623
  2. PROPYLESS [Concomitant]
     Indication: RASH
     Dates: start: 20090407
  3. BETNOVAT MED CHINOFORM [Concomitant]
     Indication: RASH
     Dosage: TWICE A DAY DURING WEEK 1, DAILY DURING WEEK 2, EVERY OTHER DAY FROM WEEK 3
     Dates: start: 20090407
  4. IMURAN [Concomitant]
     Indication: CROHN'S DISEASE
     Dates: start: 20081014
  5. HUMIRA [Suspect]
     Indication: CROHN'S DISEASE
     Dosage: BASELINE
     Route: 058
     Dates: start: 20080722, end: 20080722
  6. PROPYLESS [Concomitant]
  7. BETNOVAT MED CHINOFORM [Concomitant]
  8. PENTASA [Concomitant]
     Indication: CROHN'S DISEASE
     Dates: start: 20090818
  9. DIMOR [Concomitant]
     Indication: CROHN'S DISEASE
     Dates: start: 20070112

REACTIONS (1)
  - INTESTINAL OBSTRUCTION [None]
